FAERS Safety Report 18580169 (Version 1)
Quarter: 2020Q4

REPORT INFORMATION
  Report Type: Spontaneous
  Country: JP (occurrence: JP)
  Receive Date: 20201204
  Receipt Date: 20201204
  Transmission Date: 20210114
  Serious: Yes (Other)
  Sender: FDA-Public Use
  Company Number: NVSJ2020JP008613

PATIENT
  Age: 80 Year
  Sex: Female

DRUGS (1)
  1. SYMMETREL [Suspect]
     Active Substance: AMANTADINE HYDROCHLORIDE
     Indication: PRIMARY PROGRESSIVE APHASIA
     Dosage: UNK
     Route: 065

REACTIONS (1)
  - Hallucination, visual [Recovered/Resolved]
